FAERS Safety Report 16182353 (Version 1)
Quarter: 2019Q2

REPORT INFORMATION
  Report Type: Spontaneous
  Country: US (occurrence: US)
  Receive Date: 20190411
  Receipt Date: 20190411
  Transmission Date: 20190711
  Serious: No
  Sender: FDA-Public Use
  Company Number: US-TEVA-2019-US-1036006

PATIENT
  Sex: Female

DRUGS (1)
  1. GENERIC CAPAXONE [Suspect]
     Active Substance: GLATIRAMER ACETATE
     Indication: MULTIPLE SCLEROSIS

REACTIONS (4)
  - Injection site pain [Unknown]
  - Injection site scar [Unknown]
  - Rash papular [Unknown]
  - Neuralgia [Unknown]
